FAERS Safety Report 25118419 (Version 2)
Quarter: 2025Q2

REPORT INFORMATION
  Report Type: Report from Study
  Country: US (occurrence: US)
  Receive Date: 20250325
  Receipt Date: 20250509
  Transmission Date: 20250716
  Serious: Yes (Other)
  Sender: TAKEDA
  Company Number: US-TAKEDA-2025TUS015704

PATIENT
  Sex: Male

DRUGS (21)
  1. FRUQUINTINIB [Suspect]
     Active Substance: FRUQUINTINIB
     Indication: Colon cancer
  2. FRUQUINTINIB [Suspect]
     Active Substance: FRUQUINTINIB
  3. ATORVASTATIN [Concomitant]
     Active Substance: ATORVASTATIN
  4. DEXAMETHASONE [Concomitant]
     Active Substance: DEXAMETHASONE
  5. ELIQUIS [Concomitant]
     Active Substance: APIXABAN
  6. INSULIN GLARGINE [Concomitant]
     Active Substance: INSULIN GLARGINE
  7. LAMISIL [Concomitant]
     Active Substance: TERBINAFINE HYDROCHLORIDE
  8. LISINOPRIL [Concomitant]
     Active Substance: LISINOPRIL
  9. LOPERAMIDE [Concomitant]
     Active Substance: LOPERAMIDE
  10. LORAZEPAM [Concomitant]
     Active Substance: LORAZEPAM
  11. MIRALAX [Concomitant]
     Active Substance: POLYETHYLENE GLYCOL 3350
  12. OXYCODONE [Concomitant]
     Active Substance: OXYCODONE
  13. PROCHLORPERAZINE [Concomitant]
     Active Substance: PROCHLORPERAZINE
  14. VITAMIN B12 [Concomitant]
     Active Substance: CYANOCOBALAMIN
  15. VITAMIN D [Concomitant]
     Active Substance: VITAMIN D NOS
  16. Neuro plus [Concomitant]
  17. FERROUS SULFATE [Concomitant]
     Active Substance: FERROUS SULFATE
  18. HYDROCORTISONE [Concomitant]
     Active Substance: HYDROCORTISONE
  19. LYRICA [Concomitant]
     Active Substance: PREGABALIN
  20. SENNA [Concomitant]
     Active Substance: SENNOSIDES
  21. CALCIUM [Concomitant]
     Active Substance: CALCIUM

REACTIONS (5)
  - Neuropathy peripheral [Unknown]
  - Blister [Unknown]
  - Rash [Unknown]
  - Constipation [Recovered/Resolved]
  - Diarrhoea [Recovered/Resolved]
